FAERS Safety Report 5009860-7 (Version None)
Quarter: 2006Q2

REPORT INFORMATION
  Report Type: 
  Country: None (occurrence: None)
  Receive Date: 20060522
  Receipt Date: 20060509
  Transmission Date: 20061013
  Serious: Yes (Death, Hospitalization)
  Sender: FDA-Public Use
  Company Number: 224315

PATIENT
  Age: 57 Year
  Sex: Male
  Weight: 87 kg

DRUGS (9)
  1. MABTHERA (RITUXIMAB)CONC FOR SOLUTION FOR INFUSION [Suspect]
     Indication: CHRONIC LYMPHOCYTIC LEUKAEMIA
     Dosage: 800 MG, INTRAVENOUS
     Route: 042
     Dates: start: 20060131, end: 20060328
  2. CYCLOPHOSPHAMIDE [Suspect]
     Indication: CHRONIC LYMPHOCYTIC LEUKAEMIA
     Dosage: 535 MG , INTRAVENOUS
     Route: 042
     Dates: start: 20060301, end: 20060330
  3. FLUDARABINE [Suspect]
     Indication: CHRONIC LYMPHOCYTIC LEUKAEMIA
     Dosage: 53 MG, INTRAVENOUS
     Route: 042
     Dates: start: 20060131, end: 20060330
  4. METFORMIN [Concomitant]
  5. SULFATRIM (SULFAMETHOXAZOLE, TRIMETHOPRIM) [Concomitant]
  6. ALMODAN (AMOXICILLIN SODIUM) [Concomitant]
  7. INSULIN [Concomitant]
  8. NEUPOGEN [Concomitant]
  9. METFORMIN [Concomitant]

REACTIONS (4)
  - ANTI-HBS ANTIBODY POSITIVE [None]
  - HEPATIC FAILURE [None]
  - HEPATITIS B DNA ASSAY POSITIVE [None]
  - HEPATOTOXICITY [None]
